FAERS Safety Report 13070107 (Version 7)
Quarter: 2017Q2

REPORT INFORMATION
  Report Type: Spontaneous
  Country: US (occurrence: US)
  Receive Date: 20161228
  Receipt Date: 20170411
  Transmission Date: 20170830
  Serious: Yes (Hospitalization)
  Sender: FDA-Public Use
  Company Number: US-ACTELION-A-NJ2016-147490

PATIENT
  Age: 66 Year
  Sex: Male
  Weight: 96.15 kg

DRUGS (19)
  1. ICAR-C [Concomitant]
  2. SUCRALFATE. [Concomitant]
     Active Substance: SUCRALFATE
  3. AMIODARONE [Concomitant]
     Active Substance: AMIODARONE
  4. FAMOTIDINE. [Concomitant]
     Active Substance: FAMOTIDINE
  5. VELETRI [Suspect]
     Active Substance: EPOPROSTENOL
     Indication: PULMONARY HYPERTENSION
     Dosage: 20 NG/KG, PER MIN
     Route: 042
     Dates: start: 20160609
  6. OPSUMIT [Suspect]
     Active Substance: MACITENTAN
     Indication: PULMONARY HYPERTENSION
     Dosage: 10 MG, QD
     Route: 048
     Dates: start: 20160929
  7. ALBUTEROL. [Concomitant]
     Active Substance: ALBUTEROL
  8. METOPROLOL. [Concomitant]
     Active Substance: METOPROLOL
  9. FOLIC ACID. [Concomitant]
     Active Substance: FOLIC ACID
  10. METOLAZONE. [Concomitant]
     Active Substance: METOLAZONE
  11. OXYGEN. [Concomitant]
     Active Substance: OXYGEN
  12. IPRATROPIUM [Concomitant]
     Active Substance: IPRATROPIUM
  13. PRAVASTATIN. [Concomitant]
     Active Substance: PRAVASTATIN
  14. VELETRI [Suspect]
     Active Substance: EPOPROSTENOL
     Dosage: UNK
     Route: 042
  15. FUROSEMIDE. [Concomitant]
     Active Substance: FUROSEMIDE
  16. TAMSULOSIN [Concomitant]
     Active Substance: TAMSULOSIN
  17. HYDROCODONE BITARTRATE AND ACETAMINOPHEN [Concomitant]
     Active Substance: ACETAMINOPHEN\HYDROCODONE BITARTRATE
  18. GABAPENTIN. [Concomitant]
     Active Substance: GABAPENTIN
  19. MYCOPHENOLATE [Concomitant]
     Active Substance: MYCOPHENOLIC ACID

REACTIONS (16)
  - Device malfunction [Recovered/Resolved]
  - Infusion site rash [Recovered/Resolved]
  - Oedema peripheral [Unknown]
  - Abdominal distension [Unknown]
  - Vomiting [Unknown]
  - Pulmonary oedema [Unknown]
  - Diarrhoea [Unknown]
  - Hypoxia [Unknown]
  - Dyspnoea exertional [Unknown]
  - Device related infection [Not Recovered/Not Resolved]
  - Dyspnoea [Unknown]
  - Rash [Not Recovered/Not Resolved]
  - Cardiac failure congestive [Unknown]
  - Pulmonary arterial hypertension [Unknown]
  - Malaise [Unknown]
  - Asthenia [Not Recovered/Not Resolved]

NARRATIVE: CASE EVENT DATE: 20170110
